FAERS Safety Report 6468749-7 (Version None)
Quarter: 2009Q4

REPORT INFORMATION
  Report Type: 
  Country: None (occurrence: None)
  Receive Date: 20091203
  Receipt Date: 20091126
  Transmission Date: 20100525
  Serious: Yes (Hospitalization, Other)
  Sender: FDA-Public Use
  Company Number: BR-SANOFI-AVENTIS-2009SA005116

PATIENT
  Sex: Male
  Weight: 12 kg

DRUGS (3)
  1. LANTUS [Suspect]
     Route: 058
     Dates: start: 20090601
  2. SOLOSTAR [Suspect]
  3. INSULIN LISPRO [Concomitant]
     Route: 058
     Dates: start: 20090601

REACTIONS (12)
  - BRONCHOPNEUMONIA [None]
  - CRYING [None]
  - DRUG INEFFECTIVE [None]
  - HUNGER [None]
  - HYPERGLYCAEMIA [None]
  - HYPOGLYCAEMIA [None]
  - MUSCLE SPASMS [None]
  - NERVOUSNESS [None]
  - OFF LABEL USE [None]
  - POLLAKIURIA [None]
  - STRESS [None]
  - VISUAL IMPAIRMENT [None]
